FAERS Safety Report 5126477-4 (Version None)
Quarter: 2006Q4

REPORT INFORMATION
  Report Type: 
  Country: None (occurrence: None)
  Receive Date: 20061010
  Receipt Date: 20060925
  Transmission Date: 20070319
  Serious: Yes (Hospitalization, Other)
  Sender: FDA-Public Use
  Company Number: 2006119890

PATIENT
  Sex: Female

DRUGS (2)
  1. BEXTRA [Suspect]
     Dates: start: 20030401
  2. VIOXX [Suspect]
     Dosage: ORAL
     Route: 048
     Dates: start: 20020201

REACTIONS (1)
  - TRANSIENT ISCHAEMIC ATTACK [None]
